FAERS Safety Report 5903569-0 (Version None)
Quarter: 2008Q3

REPORT INFORMATION
  Report Type: 
  Country: None (occurrence: None)
  Receive Date: 20080919
  Receipt Date: 20080811
  Transmission Date: 20090109
  Serious: No
  Sender: FDA-Public Use
  Company Number: US-WYE-H05565208

PATIENT
  Age: 29 Year
  Sex: Female
  Weight: 67.19 kg

DRUGS (5)
  1. PRISTIQ (DESVENLAFAXINE SUCCINATE MONOHYDRATE [Suspect]
     Indication: DEPRESSION
     Dosage: 50 MG 1X PER 1 DAY, ORAL
     Route: 048
     Dates: start: 20080721
  2. FLUVOXAMINE MALEATE [Concomitant]
  3. IMITREX [Concomitant]
  4. NORTRIPTYLINE HCL [Concomitant]
  5. XANAX [Concomitant]

REACTIONS (13)
  - ABNORMAL DREAMS [None]
  - AGGRESSION [None]
  - ANXIETY [None]
  - DECREASED APPETITE [None]
  - DRUG WITHDRAWAL SYNDROME [None]
  - FEELING ABNORMAL [None]
  - HEADACHE [None]
  - INSOMNIA [None]
  - MENTAL STATUS CHANGES [None]
  - MYODESOPSIA [None]
  - NAUSEA [None]
  - SPEECH DISORDER [None]
  - THINKING ABNORMAL [None]
